FAERS Safety Report 16879358 (Version 1)
Quarter: 2019Q4

REPORT INFORMATION
  Report Type: Report from Study
  Country: AU (occurrence: AU)
  Receive Date: 20191003
  Receipt Date: 20191003
  Transmission Date: 20200122
  Serious: Yes (Hospitalization, Other)
  Sender: FDA-Public Use
  Company Number: AU-REGENERON PHARMACEUTICALS, INC.-2019-47483

PATIENT

DRUGS (2)
  1. EYLEA [Suspect]
     Active Substance: AFLIBERCEPT
     Indication: NEOVASCULAR AGE-RELATED MACULAR DEGENERATION
     Dosage: UNK
     Route: 031
     Dates: start: 20180803
  2. EYLEA [Suspect]
     Active Substance: AFLIBERCEPT
     Dosage: INJECTIONS EVERY NINE WEEKS, RIGHT EYE
     Route: 031

REACTIONS (3)
  - Macular fibrosis [Not Recovered/Not Resolved]
  - Hospitalisation [Unknown]
  - Cystitis [Recovered/Resolved]

NARRATIVE: CASE EVENT DATE: 2019
